FAERS Safety Report 8935030 (Version 2)
Quarter: 2012Q4

REPORT INFORMATION
  Report Type: 
  Country: US (occurrence: US)
  Receive Date: 20121129
  Receipt Date: 20121203
  Transmission Date: 20130627
  Serious: Yes (Hospitalization)
  Sender: FDA-Public Use
  Company Number: US-JNJFOC-20121113169

PATIENT
  Age: 29 Year
  Sex: Female

DRUGS (13)
  1. TYLENOL PM [Suspect]
     Indication: PRODUCT USED FOR UNKNOWN INDICATION
     Dosage: few tablets
     Route: 048
     Dates: start: 20081022
  2. IBUPROFEN [Suspect]
     Indication: HEADACHE
     Dosage: 400 to 600 mg
     Route: 048
     Dates: end: 20081016
  3. IBUPROFEN [Suspect]
     Indication: HEADACHE
     Route: 048
     Dates: start: 20081022
  4. IBUPROFEN [Suspect]
     Indication: ARTHRALGIA
     Dosage: 400 to 600 mg
     Route: 048
     Dates: end: 20081016
  5. IBUPROFEN [Suspect]
     Indication: ARTHRALGIA
     Route: 048
     Dates: start: 20081022
  6. FLUOXETINE [Suspect]
     Indication: DEPRESSION
     Route: 048
     Dates: start: 20081022
  7. FLUOXETINE [Suspect]
     Indication: DEPRESSION
     Dosage: 08:30
     Route: 048
     Dates: end: 20081023
  8. ZOLPIDEM [Suspect]
     Indication: INSOMNIA
     Dosage: 20:30
     Route: 048
     Dates: end: 20081022
  9. ZOLPIDEM [Suspect]
     Indication: INSOMNIA
     Route: 048
     Dates: start: 20081022
  10. CLONAZEPAM [Suspect]
     Indication: ANXIETY
     Route: 048
     Dates: start: 20081022
  11. CLONAZEPAM [Suspect]
     Indication: ANXIETY
     Dosage: as needed
     Route: 048
     Dates: end: 20081023
  12. SLEEP AID [Suspect]
     Indication: PRODUCT USED FOR UNKNOWN INDICATION
     Route: 048
     Dates: start: 20081022
  13. TYLENOL [Concomitant]
     Route: 065

REACTIONS (2)
  - Intentional overdose [Unknown]
  - Liver injury [Recovering/Resolving]
